FAERS Safety Report 5462933-7 (Version None)
Quarter: 2007Q3

REPORT INFORMATION
  Report Type: 
  Country: None (occurrence: None)
  Receive Date: 20070920
  Receipt Date: 20070912
  Transmission Date: 20080115
  Serious: Yes (Congenital Anomaly, Other)
  Sender: FDA-Public Use
  Company Number: AU-AVENTIS-200718394GDDC

PATIENT
  Age: 4 Month
  Sex: Female

DRUGS (2)
  1. TAXOTERE [Suspect]
     Route: 064
     Dates: start: 20070327, end: 20070327
  2. TAXOTERE [Suspect]
     Route: 064
     Dates: start: 20070417, end: 20070508

REACTIONS (3)
  - DRUG EXPOSURE DURING PREGNANCY [None]
  - FOETAL GROWTH RETARDATION [None]
  - PULMONARY FIBROSIS [None]
